FAERS Safety Report 6168895-1 (Version None)
Quarter: 2009Q2

REPORT INFORMATION
  Report Type: 
  Country: None (occurrence: None)
  Receive Date: 20090427
  Receipt Date: 20090416
  Transmission Date: 20091009
  Serious: Yes (Other)
  Sender: FDA-Public Use
  Company Number: US-JNJFOC-20090405089

PATIENT
  Age: 97 Year
  Weight: 79.38 kg

DRUGS (8)
  1. EXTRA STRENGTH TYLENOL [Suspect]
  2. EXTRA STRENGTH TYLENOL [Suspect]
     Indication: ARTHRITIS
  3. HYDROCHLOROTHIAZIDE [Concomitant]
     Indication: DIURETIC THERAPY
  4. ASCORBIC ACID [Concomitant]
     Indication: MEDICAL DIET
  5. CLARITIN [Concomitant]
     Indication: SINUS CONGESTION
  6. COUMADIN [Concomitant]
  7. STATIN [Concomitant]
  8. UNSPECIFIED MEDICATION [Concomitant]
     Indication: GASTRIC DISORDER

REACTIONS (3)
  - AMNESIA [None]
  - MENTAL STATUS CHANGES [None]
  - PRODUCT TAMPERING [None]
